FAERS Safety Report 9093246 (Version 1)
Quarter: 2013Q1

REPORT INFORMATION
  Report Type: Report from Study
  Country: DE (occurrence: DE)
  Receive Date: 20130201
  Receipt Date: 20130201
  Transmission Date: 20140127
  Serious: Yes (Death, Hospitalization)
  Sender: FDA-Public Use
  Company Number: DE-ROCHE-1170099

PATIENT
  Age: 65 Year
  Sex: Female
  Weight: 75 kg

DRUGS (4)
  1. BEVACIZUMAB [Suspect]
     Indication: BREAST CANCER
     Dosage: LAST DOSE PRIOR TO SAE WAS ON 13/NOV/2012. DOSE TEMPORAILY INTERRUPED ON 20/NOV/2012.
     Route: 042
     Dates: start: 20120925
  2. CARBOPLATIN [Suspect]
     Indication: BREAST CANCER
     Dosage: LAST DOSE PRIOR TO SAE WAS ON 13/NOV/2012. DOSE TEMPORAILY INTERRUPED ON 20/NOV/2012.
     Route: 042
     Dates: start: 20120925
  3. PACLITAXEL [Suspect]
     Indication: BREAST CANCER
     Dosage: LAST DOSE PRIOR TO SAE WAS ON 13/NOV/2012
     Route: 042
     Dates: start: 20120925
  4. DOXORUBICIN [Suspect]
     Indication: BREAST CANCER
     Dosage: LAST DOSE PRIOR TO SAE WAS ON 13/NOV/2012
     Route: 042
     Dates: start: 20120925

REACTIONS (1)
  - Device related sepsis [Fatal]
